FAERS Safety Report 24765051 (Version 2)
Quarter: 2024Q4

REPORT INFORMATION
  Report Type: Spontaneous
  Country: ES (occurrence: ES)
  Receive Date: 20241223
  Receipt Date: 20241226
  Transmission Date: 20250114
  Serious: Yes (Other)
  Sender: RANBAXY
  Company Number: ES-SUN PHARMACEUTICAL INDUSTRIES LTD-2024RR-484328

PATIENT
  Age: 12 Year
  Sex: Male

DRUGS (2)
  1. ERLOTINIB [Suspect]
     Active Substance: ERLOTINIB
     Indication: Respiratory papilloma
     Dosage: 150 MILLIGRAM, DAILY
     Route: 048
  2. CELECOXIB [Suspect]
     Active Substance: CELECOXIB
     Indication: Respiratory papilloma
     Dosage: 200 MILLIGRAM EVERY 12 HOURS
     Route: 048

REACTIONS (2)
  - Renal disorder [Unknown]
  - Disease progression [Unknown]
